FAERS Safety Report 17096856 (Version 4)
Quarter: 2020Q1

REPORT INFORMATION
  Report Type: Spontaneous
  Country: US (occurrence: US)
  Receive Date: 20191202
  Receipt Date: 20200123
  Transmission Date: 20200409
  Serious: Yes (Other)
  Sender: FDA-Public Use
  Company Number: US-IPSEN BIOPHARMACEUTICALS, INC.-2019-22726

PATIENT
  Age: 52 Year
  Sex: Female
  Weight: 55 kg

DRUGS (3)
  1. DYSPORT [Suspect]
     Active Substance: ABOBOTULINUMTOXINA
     Indication: SKIN WRINKLING
     Dosage: 72 IU
     Dates: start: 20170516, end: 20170516
  2. DYSPORT [Suspect]
     Active Substance: ABOBOTULINUMTOXINA
     Indication: SKIN WRINKLING
  3. DYSPORT [Suspect]
     Active Substance: ABOBOTULINUMTOXINA
     Indication: OFF LABEL USE

REACTIONS (13)
  - Dysphagia [Unknown]
  - Drug ineffective [Unknown]
  - Drug ineffective [Unknown]
  - Injection site erythema [Unknown]
  - Drug ineffective [Unknown]
  - Neck pain [Unknown]
  - Cough [Unknown]
  - Injection site swelling [Unknown]
  - Neuromuscular toxicity [Unknown]
  - Throat irritation [Unknown]
  - Muscle tightness [Unknown]
  - Off label use [Unknown]
  - Off label use [Unknown]

NARRATIVE: CASE EVENT DATE: 2016
